FAERS Safety Report 8417132-3 (Version None)
Quarter: 2012Q2

REPORT INFORMATION
  Report Type: 
  Country: None (occurrence: None)
  Receive Date: 20120606
  Receipt Date: 20120529
  Transmission Date: 20120825
  Serious: Yes (Other)
  Sender: FDA-Public Use
  Company Number: US-ACTELION-A-US2012-66628

PATIENT

DRUGS (4)
  1. PLAVIX [Concomitant]
  2. SILDENAFIL [Concomitant]
  3. REMODULIN [Concomitant]
  4. TRACLEER [Suspect]
     Indication: PRODUCT USED FOR UNKNOWN INDICATION
     Dosage: UNK
     Route: 048
     Dates: start: 20080904

REACTIONS (2)
  - RADIOTHERAPY [None]
  - BLADDER CANCER [None]
